FAERS Safety Report 4740957-2 (Version None)
Quarter: 2005Q3

REPORT INFORMATION
  Report Type: 
  Country: None (occurrence: None)
  Receive Date: 20050810
  Receipt Date: 20050502
  Transmission Date: 20060218
  Serious: Yes (Hospitalization)
  Sender: FDA-Public Use
  Company Number: 200511147EU

PATIENT
  Age: 16 Year
  Sex: Male

DRUGS (4)
  1. KETEK [Suspect]
     Indication: PHARYNGITIS
     Route: 048
     Dates: start: 20050211, end: 20050211
  2. BENTELAN [Suspect]
     Indication: PHARYNGITIS
     Route: 055
     Dates: start: 20050211, end: 20050212
  3. MEDROL [Suspect]
     Indication: PHARYNGITIS
     Route: 048
     Dates: start: 20050211, end: 20050212
  4. LINCOCIN [Suspect]
     Indication: PHARYNGITIS
     Route: 055
     Dates: start: 20050211, end: 20050212

REACTIONS (2)
  - ASTHENIA [None]
  - HYPOKALAEMIA [None]
